FAERS Safety Report 20719786 (Version 1)
Quarter: 2022Q2

REPORT INFORMATION
  Report Type: Spontaneous
  Country: JP (occurrence: JP)
  Receive Date: 20220418
  Receipt Date: 20220418
  Transmission Date: 20220720
  Serious: Yes (Other)
  Sender: FDA-Public Use
  Company Number: JP-Merck Healthcare KGaA-9312590

PATIENT
  Sex: Male

DRUGS (3)
  1. ERBITUX [Suspect]
     Active Substance: CETUXIMAB
     Indication: Colon cancer
     Dosage: 250 MG/M2, WEEKLY (1/W)
     Route: 041
     Dates: start: 20220225, end: 20220331
  2. ENCORAFENIB [Suspect]
     Active Substance: ENCORAFENIB
     Indication: Colon cancer
     Dosage: 300 MG, DAILY
     Route: 048
     Dates: start: 20220225, end: 20220331
  3. BINIMETINIB [Suspect]
     Active Substance: BINIMETINIB
     Indication: Colon cancer
     Dosage: 45 MG, UNK
     Route: 048
     Dates: start: 20220225, end: 20220331

REACTIONS (3)
  - Pneumomediastinum [Recovered/Resolved]
  - Dementia [Unknown]
  - Off label use [Unknown]

NARRATIVE: CASE EVENT DATE: 20220331
